FAERS Safety Report 6804560-2 (Version None)
Quarter: 2010Q2

REPORT INFORMATION
  Report Type: 
  Country: None (occurrence: None)
  Receive Date: 20100628
  Receipt Date: 20070419
  Transmission Date: 20101027
  Serious: Yes (Disabling, Other)
  Sender: FDA-Public Use
  Company Number: US-PFIZER INC-2007032247

PATIENT
  Sex: Male
  Weight: 163.63 kg

DRUGS (6)
  1. GEODON [Suspect]
     Indication: INSOMNIA
     Dates: start: 20070226, end: 20070328
  2. BENADRYL [Interacting]
     Indication: HYPERSENSITIVITY
     Dosage: QD EVERYDAY
     Dates: start: 20070305, end: 20070306
  3. ALL OTHER THERAPEUTIC PRODUCTS [Concomitant]
  4. LUNESTA [Concomitant]
  5. SONATA [Concomitant]
  6. FEXOFENADINE [Concomitant]

REACTIONS (8)
  - DRUG INTERACTION [None]
  - DYSPNOEA [None]
  - FEELING COLD [None]
  - FEELING HOT [None]
  - HYPERHIDROSIS [None]
  - HYPERSENSITIVITY [None]
  - TREMOR [None]
  - WEIGHT DECREASED [None]
